FAERS Safety Report 9507648 (Version 1)
Quarter: 2013Q3

REPORT INFORMATION
  Report Type: Spontaneous
  Country: GB (occurrence: None)
  Receive Date: 20130905
  Receipt Date: 20130905
  Transmission Date: 20140515
  Serious: Yes (Other)
  Sender: FDA-Public Use
  Company Number: KAD201308-001114

PATIENT
  Age: 41 Year
  Sex: Female

DRUGS (3)
  1. RIBAVIRIN [Suspect]
     Indication: HEPATITIS C
     Route: 048
     Dates: start: 20121116
  2. PEGINTERFERON ALFA-2B (PEGINTERFERON ALFA-2B) [Suspect]
     Indication: HEPATITIS C
     Dosage: LIQUID, SUBCUTANEOUS
     Route: 058
     Dates: start: 20121116
  3. INCIVO [Suspect]
     Indication: HEPATITIS C

REACTIONS (3)
  - Anxiety [None]
  - Feeling hot [None]
  - Local swelling [None]
